FAERS Safety Report 11038230 (Version 3)
Quarter: 2015Q4

REPORT INFORMATION
  Report Type: Spontaneous
  Country: US (occurrence: US)
  Receive Date: 20150416
  Receipt Date: 20151123
  Transmission Date: 20160304
  Serious: Yes (Hospitalization, Other)
  Sender: FDA-Public Use
  Company Number: US-009507513-1504USA015016

PATIENT
  Sex: Male

DRUGS (1)
  1. PROPECIA [Suspect]
     Active Substance: FINASTERIDE
     Indication: ALOPECIA
     Dosage: 1 MG, QD
     Route: 048
     Dates: start: 1997, end: 2000

REACTIONS (23)
  - Libido decreased [Not Recovered/Not Resolved]
  - Cholecystectomy [Unknown]
  - Endocrine disorder [Not Recovered/Not Resolved]
  - Breast mass [Not Recovered/Not Resolved]
  - Loss of libido [Not Recovered/Not Resolved]
  - Sinusitis [Unknown]
  - Brain injury [Not Recovered/Not Resolved]
  - Urinary tract disorder [Unknown]
  - Ejaculation disorder [Not Recovered/Not Resolved]
  - Intervertebral disc protrusion [Unknown]
  - Appendicectomy [Unknown]
  - Disturbance in attention [Not Recovered/Not Resolved]
  - Semen volume decreased [Not Recovered/Not Resolved]
  - Sinusitis [Unknown]
  - Ankle operation [Unknown]
  - Bacterial disease carrier [Unknown]
  - Sexual dysfunction [Not Recovered/Not Resolved]
  - Erectile dysfunction [Not Recovered/Not Resolved]
  - Sinusitis [Unknown]
  - Penis injury [Not Recovered/Not Resolved]
  - Gynaecomastia [Not Recovered/Not Resolved]
  - Hormone level abnormal [Not Recovered/Not Resolved]
  - Adverse drug reaction [Unknown]

NARRATIVE: CASE EVENT DATE: 1997
